FAERS Safety Report 5065397-0 (Version None)
Quarter: 2006Q3

REPORT INFORMATION
  Report Type: 
  Country: None (occurrence: None)
  Receive Date: 20060731
  Receipt Date: 20060724
  Transmission Date: 20061208
  Serious: Yes (Other)
  Sender: FDA-Public Use
  Company Number: DE-AVENTIS-200612168DE

PATIENT
  Age: 36 Year
  Sex: Female

DRUGS (2)
  1. ARAVA [Suspect]
     Dosage: DOSE: NOT REPORTED
  2. METHOTREXATE [Concomitant]
     Dosage: DOSE: NOT REPORTED

REACTIONS (1)
  - SYSTEMIC LUPUS ERYTHEMATOSUS [None]
